FAERS Safety Report 9002097 (Version 1)
Quarter: 2013Q1

REPORT INFORMATION
  Report Type: Spontaneous
  Country: IN (occurrence: IN)
  Receive Date: 20130108
  Receipt Date: 20130108
  Transmission Date: 20140127
  Serious: Yes (Other)
  Sender: FDA-Public Use
  Company Number: IN-RANBAXY-2012R1-63800

PATIENT
  Age: 55 Year
  Sex: Female

DRUGS (1)
  1. AMOXICILLIN + CLAVULANATE POTASSIUM [Suspect]
     Indication: PROPHYLAXIS
     Dosage: 1.2 G OVER 5 MIN
     Route: 042

REACTIONS (1)
  - Anaphylactic reaction [Recovering/Resolving]
